FAERS Safety Report 10842266 (Version 1)
Quarter: 2015Q1

REPORT INFORMATION
  Report Type: Spontaneous
  Country: US (occurrence: US)
  Receive Date: 20150220
  Receipt Date: 20150220
  Transmission Date: 20150721
  Serious: No
  Sender: FDA-Public Use
  Company Number: US-AMGEN-USASP2015014856

PATIENT
  Age: 64 Year

DRUGS (18)
  1. PROLIA [Concomitant]
     Active Substance: DENOSUMAB
     Dosage: 60 MG/ML, 1 MILLILITER BY EVERY 6 MONTHS
     Route: 058
  2. VITAMIN B12 [Concomitant]
     Active Substance: CYANOCOBALAMIN
     Dosage: 1000 MUG/ML, 0.1 MILLILITER (100MCG) EVERY MONTH
     Route: 030
  3. EPIPEN [Concomitant]
     Active Substance: EPINEPHRINE
     Indication: ANAPHYLACTIC REACTION
     Dosage: 0.3 MG/0.3 ML (1:1,000) 0.3 MILLILITER AS NEEDED
     Route: 030
  4. PROVENTIL HFA                      /00139501/ [Concomitant]
     Dosage: 90 MCG/ACTUATION AEROSOL INHALER 2 PUFF EVERY 4 - 6HOURS AS NEEDED
  5. PREVACID [Concomitant]
     Active Substance: LANSOPRAZOLE
     Dosage: 30 MG, QD
  6. FOLIC ACID. [Concomitant]
     Active Substance: FOLIC ACID
     Dosage: 1 MG, QD
     Route: 048
  7. PLAQUENIL [Concomitant]
     Active Substance: HYDROXYCHLOROQUINE SULFATE
     Dosage: 400 MG, QD
  8. PREDNISONE. [Concomitant]
     Active Substance: PREDNISONE
     Dosage: 10 MG TABLET , 2 TABLETS ONCE DAILY
  9. ULORIC [Concomitant]
     Active Substance: FEBUXOSTAT
     Dosage: 40 MG, QD
     Route: 048
  10. ENBREL [Suspect]
     Active Substance: ETANERCEPT
     Indication: PRODUCT USED FOR UNKNOWN INDICATION
     Dosage: UNK
     Route: 065
  11. DILTIAZEM [Concomitant]
     Active Substance: DILTIAZEM
     Dosage: 360 MG, QD
     Route: 048
  12. RESTASIS [Concomitant]
     Active Substance: CYCLOSPORINE
     Dosage: 0.05 % EYE DROPPERETTE 1 DROP EVERY 12 HRS
     Route: 047
  13. XANAX [Concomitant]
     Active Substance: ALPRAZOLAM
     Dosage: 0.25 MG, AS NECESSARY
     Route: 048
  14. ZITHROMAX [Concomitant]
     Active Substance: AZITHROMYCIN DIHYDRATE
     Dosage: 250 MG, (TAKE 2 TABLET EVERYDAY FOR 1 DAY AND THEN 1 TABLET ONCE DAILY FOR 4 DAYS)
     Route: 048
  15. SILDENAFIL. [Concomitant]
     Active Substance: SILDENAFIL
     Dosage: 20 MG, QD
     Route: 048
  16. OPSUMIT [Concomitant]
     Active Substance: MACITENTAN
     Dosage: 10 MG, QD
     Route: 048
  17. FUROSEMIDE. [Concomitant]
     Active Substance: FUROSEMIDE
     Dosage: 20 MG, QD
     Route: 048
  18. LYRICA [Concomitant]
     Active Substance: PREGABALIN
     Dosage: 100 MG, TID
     Route: 048

REACTIONS (1)
  - Rash [Unknown]
